FAERS Safety Report 10161880 (Version 1)
Quarter: 2014Q2

REPORT INFORMATION
  Report Type: Spontaneous
  Country: FR (occurrence: FR)
  Receive Date: 20140509
  Receipt Date: 20140509
  Transmission Date: 20141212
  Serious: Yes (Death, Life-Threatening)
  Sender: FDA-Public Use
  Company Number: FR-JNJFOC-20140503903

PATIENT
  Age: 46 Year
  Sex: Male

DRUGS (10)
  1. XARELTO [Suspect]
     Indication: ATRIAL FIBRILLATION
     Route: 048
     Dates: start: 20140321, end: 20140325
  2. XARELTO [Suspect]
     Indication: ANTICOAGULANT THERAPY
     Route: 048
     Dates: start: 20140321, end: 20140325
  3. SPORANOX [Suspect]
     Indication: PRODUCT USED FOR UNKNOWN INDICATION
     Route: 048
     Dates: end: 20140327
  4. MONOTILDIEM [Concomitant]
     Indication: HYPERTENSION
     Route: 048
     Dates: start: 20140318, end: 20140321
  5. ARIXTRA [Concomitant]
     Indication: PROPHYLAXIS
     Route: 042
     Dates: start: 20140318, end: 20140321
  6. LOXEN [Concomitant]
     Route: 048
     Dates: end: 20140327
  7. FLECAINE [Concomitant]
     Indication: HYPERTENSION
     Route: 048
     Dates: start: 20140321, end: 20140328
  8. SOLUPRED [Concomitant]
     Route: 048
     Dates: start: 2007, end: 20140328
  9. METFORMINE [Concomitant]
     Route: 048
     Dates: end: 20140327
  10. CORDARONE [Concomitant]
     Indication: ATRIAL FIBRILLATION
     Route: 048
     Dates: start: 20140318, end: 20140321

REACTIONS (3)
  - Haematoma [Fatal]
  - Renal failure acute [Fatal]
  - Shock haemorrhagic [Fatal]
